FAERS Safety Report 9475298 (Version 2)
Quarter: 2013Q4

REPORT INFORMATION
  Report Type: Spontaneous
  Country: IT (occurrence: None)
  Receive Date: 20130820
  Receipt Date: 20131017
  Transmission Date: 20140711
  Serious: Yes (Hospitalization)
  Sender: FDA-Public Use
  Company Number: AUR-APL-2013-06715

PATIENT
  Age: 22 Year
  Sex: Male

DRUGS (3)
  1. AMXICILLIN [Suspect]
     Indication: TONSILLITIS
     Route: 048
     Dates: start: 20130611, end: 20130617
  2. FLURBIPROFEN [Suspect]
     Indication: TONSILLITIS
     Route: 048
     Dates: start: 20130611, end: 20130617
  3. ZERINOL (ZERINOL) [Concomitant]

REACTIONS (6)
  - Face oedema [None]
  - Urticaria [None]
  - Abdominal pain [None]
  - Diarrhoea [None]
  - Blood pressure systolic decreased [None]
  - Blood pressure diastolic increased [None]
